FAERS Safety Report 20545727 (Version 1)
Quarter: 2022Q1

REPORT INFORMATION
  Report Type: Report from Study
  Country: CA (occurrence: CA)
  Receive Date: 20220303
  Receipt Date: 20220303
  Transmission Date: 20220423
  Serious: Yes (Other)
  Sender: FDA-Public Use
  Company Number: CA-BAUSCH-BL-2021-019745

PATIENT

DRUGS (7)
  1. CONTRAVE [Suspect]
     Active Substance: BUPROPION HYDROCHLORIDE\NALTREXONE HYDROCHLORIDE
     Indication: Weight control
     Dosage: DOSE: 90/8 MILLIGRAM, STOP DATE: 22/MAR/2021 (APPROXIMATELY)
     Route: 048
     Dates: start: 20200117, end: 202103
  2. CONTRAVE [Suspect]
     Active Substance: BUPROPION HYDROCHLORIDE\NALTREXONE HYDROCHLORIDE
     Dosage: DOSE: 90/8 MILLIGRAM (1 DOSAGE FORMS, 1 IN 1 D)
     Route: 048
     Dates: start: 20210514, end: 20210520
  3. CONTRAVE [Suspect]
     Active Substance: BUPROPION HYDROCHLORIDE\NALTREXONE HYDROCHLORIDE
     Dosage: DOSE: 90/8 MILLIGRAM (1 DOSAGE FORMS, 1 IN 12 HR)
     Route: 048
     Dates: start: 20210521
  4. CONTRAVE [Suspect]
     Active Substance: BUPROPION HYDROCHLORIDE\NALTREXONE HYDROCHLORIDE
     Dosage: DOSE: 90/8 MILLIGRAM (2 DOSAGE FORMS, 1 IN 12 HR)
     Route: 048
     Dates: end: 20220127
  5. THYROXINE [Concomitant]
     Active Substance: LEVOTHYROXINE
     Indication: Thyroid disorder
     Dosage: START DATE: 17/MAY/2021 (APPROXIMATELY) (0.05 MG,1 IN 1 D)
     Route: 048
     Dates: start: 20210517
  6. TRANEXAMIC ACID [Concomitant]
     Active Substance: TRANEXAMIC ACID
     Indication: Menstrual disorder
     Dosage: 2 TABLETS (2 DOSAGE FORMS, 1 IN 6 HR)
     Route: 048
     Dates: end: 202111
  7. NAPROXEN [Concomitant]
     Active Substance: NAPROXEN
     Indication: Menstrual disorder
     Dosage: 2 DOSAGE FORMS (1 DOSAGE FORMS, 1 IN 12 HR)
     Route: 048
     Dates: end: 202111

REACTIONS (5)
  - Hysterectomy [Unknown]
  - Weight increased [Recovering/Resolving]
  - Therapy interrupted [Unknown]
  - Drug titration error [Unknown]
  - Product availability issue [Unknown]

NARRATIVE: CASE EVENT DATE: 20210101
